FAERS Safety Report 8518944-8 (Version None)
Quarter: 2012Q3

REPORT INFORMATION
  Report Type: 
  Country: None (occurrence: None)
  Receive Date: 20120718
  Receipt Date: 20120713
  Transmission Date: 20120928
  Serious: Yes (Other)
  Sender: FDA-Public Use
  Company Number: AU-GLAXOSMITHKLINE-B0781722A

PATIENT
  Sex: Female

DRUGS (3)
  1. XELODA [Suspect]
     Indication: BREAST CANCER
     Dosage: 2000MG PER DAY
     Route: 065
     Dates: start: 20120101, end: 20120706
  2. TYKERB [Suspect]
     Indication: BREAST CANCER METASTATIC
     Dosage: 1250MG PER DAY
     Route: 065
     Dates: start: 20120101, end: 20120706
  3. STEROID [Concomitant]
     Indication: NAUSEA
     Route: 065

REACTIONS (12)
  - PALMAR-PLANTAR ERYTHRODYSAESTHESIA SYNDROME [None]
  - MALAISE [None]
  - INFLUENZA [None]
  - SKIN REACTION [None]
  - LIP PAIN [None]
  - SKIN CHAPPED [None]
  - WEIGHT DECREASED [None]
  - NAUSEA [None]
  - ORAL PAIN [None]
  - FATIGUE [None]
  - ERYTHEMA [None]
  - SWELLING FACE [None]
